FAERS Safety Report 6441999-1 (Version None)
Quarter: 2009Q4

REPORT INFORMATION
  Report Type: 
  Country: None (occurrence: None)
  Receive Date: 20091116
  Receipt Date: 20091112
  Transmission Date: 20100525
  Serious: Yes (Death, Hospitalization)
  Sender: FDA-Public Use
  Company Number: BR-ABBOTT-09P-020-0604310-04

PATIENT
  Sex: Male

DRUGS (3)
  1. RITONAVIR SOFT GELATIN CAPSULES [Suspect]
     Indication: HIV INFECTION
     Route: 048
     Dates: start: 20080824, end: 20091107
  2. TMC125 [Concomitant]
     Indication: HIV INFECTION
     Route: 048
     Dates: start: 20080824, end: 20091107
  3. TMC114 [Concomitant]
     Indication: HIV INFECTION
     Route: 048
     Dates: start: 20080824, end: 20091107

REACTIONS (3)
  - CYTOMEGALOVIRUS INFECTION [None]
  - MYELITIS [None]
  - PARAPARESIS [None]
